FAERS Safety Report 4595779-2 (Version None)
Quarter: 2005Q1

REPORT INFORMATION
  Report Type: 
  Country: None (occurrence: None)
  Receive Date: 20050224
  Receipt Date: 20050215
  Transmission Date: 20050727
  Serious: No
  Sender: FDA-Public Use
  Company Number: 2005GB00079

PATIENT
  Age: 80 Year
  Sex: Female
  Weight: 70 kg

DRUGS (4)
  1. CRESTOR [Suspect]
     Indication: BLOOD CHOLESTEROL INCREASED
     Dosage: 10 MG QD PO
     Route: 048
     Dates: start: 20041223
  2. ASPIRIN [Suspect]
     Dates: start: 20041223
  3. ISTIN [Concomitant]
  4. SINEMET [Concomitant]

REACTIONS (2)
  - DRUG INTERACTION [None]
  - TRANSIENT ISCHAEMIC ATTACK [None]
